FAERS Safety Report 18462448 (Version 1)
Quarter: 2020Q4

REPORT INFORMATION
  Report Type: Spontaneous
  Country: US (occurrence: US)
  Receive Date: 20201103
  Receipt Date: 20201103
  Transmission Date: 20210114
  Serious: Yes (Hospitalization)
  Sender: FDA-Public Use
  Company Number: None

PATIENT
  Age: 35 Year
  Sex: Female
  Weight: 77.4 kg

DRUGS (1)
  1. CLINDAMYCIN. [Suspect]
     Active Substance: CLINDAMYCIN
     Indication: TOOTH INFECTION
     Route: 055
     Dates: start: 20201101, end: 20201103

REACTIONS (4)
  - Swollen tongue [None]
  - Urticaria [None]
  - Drug hypersensitivity [None]
  - Pharyngeal swelling [None]

NARRATIVE: CASE EVENT DATE: 20201103
